FAERS Safety Report 15090352 (Version 1)
Quarter: 2018Q2

REPORT INFORMATION
  Report Type: Spontaneous
  Country: US (occurrence: US)
  Receive Date: 20180629
  Receipt Date: 20180629
  Transmission Date: 20180711
  Serious: Yes (Other)
  Sender: FDA-Public Use
  Company Number: US-LPDUSPRD-20181188

PATIENT
  Age: 63 Year
  Sex: Male

DRUGS (3)
  1. CARBOPLATIN. [Concomitant]
     Active Substance: CARBOPLATIN
     Dosage: AREA UNDER THE CURVE 5
     Route: 065
  2. GEMCITABINE [Suspect]
     Active Substance: GEMCITABINE\GEMCITABINE HYDROCHLORIDE
     Dosage: 1250 MG/M2
     Route: 065
  3. RADIATION THERAPY [Suspect]
     Active Substance: RADIATION THERAPY
     Dosage: 30 GY IN 10 DAILY FRACTIONS
     Route: 065

REACTIONS (2)
  - Recall phenomenon [Unknown]
  - Myositis [Unknown]
